FAERS Safety Report 5901705-3 (Version None)
Quarter: 2008Q3

REPORT INFORMATION
  Report Type: 
  Country: None (occurrence: None)
  Receive Date: 20080929
  Receipt Date: 20080922
  Transmission Date: 20090109
  Serious: Yes (Other)
  Sender: FDA-Public Use
  Company Number: B0361426A

PATIENT
  Age: 29 Year
  Sex: Female

DRUGS (9)
  1. PAROXETINE HYDROCHLORIDE [Suspect]
     Route: 065
     Dates: start: 20010109
  2. MIRTAZAPINE [Concomitant]
     Dates: start: 20030509
  3. CITALOPRAM HYDROBROMIDE [Concomitant]
     Dates: start: 20030613
  4. HYDROXYZINE [Concomitant]
  5. DIAZEPAM [Concomitant]
     Dates: start: 20010102, end: 20050722
  6. PROZAC [Concomitant]
     Dates: start: 19980121, end: 20010109
  7. PROCHLORPERAZINE [Concomitant]
     Dates: start: 20050701
  8. BUSPIRONE HCL [Concomitant]
     Dates: start: 20050801
  9. CONTRACEPTIVE PILL [Concomitant]
     Indication: ANXIETY
     Route: 048
     Dates: start: 20070101

REACTIONS (13)
  - ABDOMINAL PAIN UPPER [None]
  - ADVERSE EVENT [None]
  - ANOREXIA [None]
  - ANXIETY [None]
  - DRUG WITHDRAWAL SYNDROME [None]
  - EATING DISORDER [None]
  - INFLUENZA LIKE ILLNESS [None]
  - LOSS OF CONSCIOUSNESS [None]
  - PANIC REACTION [None]
  - SENSORY DISTURBANCE [None]
  - SOCIAL AVOIDANT BEHAVIOUR [None]
  - TREMOR [None]
  - WITHDRAWAL SYNDROME [None]
